FAERS Safety Report 10213391 (Version 1)
Quarter: 2014Q2

REPORT INFORMATION
  Report Type: Spontaneous
  Country: US (occurrence: None)
  Receive Date: 20140530
  Receipt Date: 20140530
  Transmission Date: 20141212
  Serious: Yes (Life-Threatening)
  Sender: FDA-Public Use
  Company Number: None

PATIENT
  Age: 70 Year
  Sex: Male
  Weight: 90.2 kg

DRUGS (1)
  1. DEXMEDETOMIDINE [Suspect]
     Dates: start: 20140320, end: 20140320

REACTIONS (1)
  - Atrioventricular block second degree [None]
